FAERS Safety Report 11371793 (Version 3)
Quarter: 2016Q2

REPORT INFORMATION
  Report Type: Spontaneous
  Country: US (occurrence: US)
  Receive Date: 20150812
  Receipt Date: 20160603
  Transmission Date: 20160815
  Serious: Yes (Other)
  Sender: FDA-Public Use
  Company Number: US-DSJP-DSU-2015-124886

PATIENT
  Age: 53 Year
  Sex: Male
  Weight: 90.25 kg

DRUGS (4)
  1. TRIBENZOR [Suspect]
     Active Substance: AMLODIPINE BESYLATE\HYDROCHLOROTHIAZIDE\OLMESARTAN MEDOXOMIL
     Indication: BLOOD PRESSURE INCREASED
     Dosage: UNK
     Dates: start: 20090401
  2. BENICAR [Suspect]
     Active Substance: OLMESARTAN MEDOXOMIL
     Dosage: 40 MG, UNK
  3. BENICAR [Suspect]
     Active Substance: OLMESARTAN MEDOXOMIL
     Indication: BLOOD PRESSURE INCREASED
     Dosage: 20 MG, UNK
     Dates: start: 20090401, end: 20140126
  4. TRIBENZOR [Suspect]
     Active Substance: AMLODIPINE BESYLATE\HYDROCHLOROTHIAZIDE\OLMESARTAN MEDOXOMIL
     Dosage: 40/10/25 MGUNK
     Dates: start: 20131127, end: 20141106

REACTIONS (12)
  - Oesophagitis [Unknown]
  - Helicobacter gastritis [Unknown]
  - Diverticulum [Unknown]
  - Renal failure [Unknown]
  - Hepatic cyst [Unknown]
  - Peptic ulcer [Unknown]
  - Impaired gastric emptying [Unknown]
  - Gastric disorder [Unknown]
  - Malabsorption [Unknown]
  - Renal cyst [Unknown]
  - Gastrooesophageal reflux disease [Unknown]
  - Nephrolithiasis [Unknown]

NARRATIVE: CASE EVENT DATE: 201311
